FAERS Safety Report 25469217 (Version 1)
Quarter: 2025Q2

REPORT INFORMATION
  Report Type: Spontaneous
  Country: FR (occurrence: FR)
  Receive Date: 20250623
  Receipt Date: 20250623
  Transmission Date: 20250716
  Serious: Yes (Hospitalization)
  Sender: MYLAN
  Company Number: None

PATIENT
  Age: 73 Year
  Sex: Female
  Weight: 90 kg

DRUGS (12)
  1. ARIXTRA [Suspect]
     Active Substance: FONDAPARINUX SODIUM
     Indication: Phlebitis
     Dosage: 1 DOSAGE FORM, QD
     Dates: start: 20250506, end: 20250514
  2. BACLOFEN [Concomitant]
     Active Substance: BACLOFEN
     Indication: Muscle spasticity
     Dosage: 10 MILLIGRAM, Q8H
  3. ATENOLOL [Concomitant]
     Active Substance: ATENOLOL
     Indication: Cardiac flutter
     Dosage: 50 MILLIGRAM, QD
  4. METFORMIN PAMOATE [Concomitant]
     Active Substance: METFORMIN PAMOATE
     Indication: Insulin-requiring type 2 diabetes mellitus
     Dosage: 700 MILLIGRAM, BID (SCORED TABLET)
  5. INSULIN GLARGINE [Concomitant]
     Active Substance: INSULIN GLARGINE
     Indication: Insulin-requiring type 2 diabetes mellitus
     Dosage: 30 INTERNATIONAL UNIT, QD (100 UNITS/ML, IN PRE-FILLED PEN)
  6. TRULICITY [Concomitant]
     Active Substance: DULAGLUTIDE
     Indication: Insulin-requiring type 2 diabetes mellitus
     Dosage: 0.75 MILLIGRAM, QW (PRE-FILLED SYRINGE)
  7. DOLIPRANE [Concomitant]
     Active Substance: ACETAMINOPHEN
     Indication: Pain
     Dosage: 500 MILLIGRAM, BID
  8. PREGABALIN [Concomitant]
     Active Substance: PREGABALIN
     Indication: Pain
     Dosage: 75 MILLIGRAM, BID
  9. POTASSIUM CHLORIDE [Concomitant]
     Active Substance: POTASSIUM CHLORIDE
     Indication: Mineral supplementation
     Dosage: 600 MILLIGRAM, QD
  10. FUROSEMIDE [Concomitant]
     Active Substance: FUROSEMIDE
     Indication: Hypertension
     Dosage: 20 MILLIGRAM, QD (SCORED TABLET)
  11. LEVOTHYROXINE [Concomitant]
     Active Substance: LEVOTHYROXINE
     Indication: Goitre
     Dosage: 50 MICROGRAM, QD (SCORED TABLET)
  12. LATANOPROST [Concomitant]
     Active Substance: LATANOPROST
     Indication: Ocular hypertension
     Dosage: 1 GTT DROPS, QD (SINGLE-DOSE CONTAINER)

REACTIONS (1)
  - Shock haemorrhagic [Recovered/Resolved]

NARRATIVE: CASE EVENT DATE: 20250514
